FAERS Safety Report 8329984-6 (Version None)
Quarter: 2012Q2

REPORT INFORMATION
  Report Type: 
  Country: None (occurrence: None)
  Receive Date: 20120502
  Receipt Date: 20091214
  Transmission Date: 20120825
  Serious: No
  Sender: FDA-Public Use
  Company Number: US-TEVA-2009029694

PATIENT
  Sex: Male
  Weight: 89.892 kg

DRUGS (10)
  1. ZETIA [Concomitant]
     Indication: BLOOD CHOLESTEROL INCREASED
     Dosage: 10 MILLIGRAM;
  2. FLUOXETINE [Concomitant]
     Indication: ANXIETY
     Dosage: 40 MILLIGRAM;
     Dates: start: 20070101
  3. ETODOLAC [Concomitant]
     Indication: INTERVERTEBRAL DISC PROTRUSION
     Dosage: 800 MILLIGRAM;
  4. PRAVASTATIN [Concomitant]
     Indication: BLOOD CHOLESTEROL INCREASED
     Dosage: 20 MILLIGRAM;
  5. VIT/ZINC/FISH OIL/VIT D [Concomitant]
  6. NUVIGIL [Suspect]
     Indication: SLEEP APNOEA SYNDROME
     Route: 048
     Dates: start: 20091001, end: 20091201
  7. NUVIGIL [Suspect]
     Dosage: 250 MILLIGRAM;
     Route: 048
     Dates: start: 20091201
  8. GABAPENTIN [Concomitant]
     Indication: INTERVERTEBRAL DISC PROTRUSION
     Dosage: 1200 MILLIGRAM;
  9. TYLENOL ARTHRITIS [Concomitant]
     Dosage: 1300 MILLIGRAM;
  10. ASPIRIN [Concomitant]

REACTIONS (1)
  - DRUG EFFECT DECREASED [None]
